FAERS Safety Report 7650683-8 (Version None)
Quarter: 2011Q3

REPORT INFORMATION
  Report Type: 
  Country: None (occurrence: None)
  Receive Date: 20110802
  Receipt Date: 20110726
  Transmission Date: 20111222
  Serious: Yes (Hospitalization)
  Sender: FDA-Public Use
  Company Number: US-GILEAD-2011-0042303

PATIENT
  Age: 53 Year
  Sex: Female

DRUGS (2)
  1. LETAIRIS [Suspect]
     Indication: PRODUCT USED FOR UNKNOWN INDICATION
     Route: 048
     Dates: start: 20100608, end: 20110726
  2. REMODULIN [Concomitant]

REACTIONS (6)
  - FALL [None]
  - HAEMOGLOBIN DECREASED [None]
  - GAIT DISTURBANCE [None]
  - HYPOTENSION [None]
  - PAIN IN EXTREMITY [None]
  - OEDEMA PERIPHERAL [None]
